FAERS Safety Report 11067943 (Version 1)
Quarter: 2015Q2

REPORT INFORMATION
  Report Type: Report from Study
  Country: US (occurrence: US)
  Receive Date: 20150427
  Receipt Date: 20150427
  Transmission Date: 20150821
  Serious: Yes (Hospitalization)
  Sender: FDA-Public Use
  Company Number: US-JNJFOC-20150413404

PATIENT
  Age: 50 Year
  Sex: Female
  Weight: 81.19 kg

DRUGS (2)
  1. EFALIZUMAB [Concomitant]
     Active Substance: EFALIZUMAB
     Route: 065
     Dates: start: 200712
  2. USTEKINUMAB [Suspect]
     Active Substance: USTEKINUMAB
     Indication: PRODUCT USED FOR UNKNOWN INDICATION
     Route: 058
     Dates: start: 201407

REACTIONS (2)
  - Prerenal failure [Recovered/Resolved]
  - Gastroenteritis salmonella [Recovered/Resolved]

NARRATIVE: CASE EVENT DATE: 20150216
